FAERS Safety Report 5503021-0 (Version None)
Quarter: 2007Q4

REPORT INFORMATION
  Report Type: 
  Country: None (occurrence: None)
  Receive Date: 20071029
  Receipt Date: 20071012
  Transmission Date: 20080405
  Serious: Yes (Other)
  Sender: FDA-Public Use
  Company Number: 2007US002631

PATIENT
  Age: 5 Year
  Sex: Female
  Weight: 21 kg

DRUGS (4)
  1. PROGRAF [Suspect]
     Indication: HEART TRANSPLANT
     Dosage: BID
  2. MYCOPHENOLATE MOFETIL [Suspect]
     Indication: HEART TRANSPLANT
  3. AZATHIOPRINE [Suspect]
     Indication: HEART TRANSPLANT
  4. ASPIRIN [Concomitant]

REACTIONS (10)
  - ALLERGIC COLITIS [None]
  - COMPLICATIONS OF TRANSPLANTED HEART [None]
  - CORONARY ARTERY STENOSIS [None]
  - CYTOMEGALOVIRUS TEST POSITIVE [None]
  - DIARRHOEA [None]
  - ELECTROCARDIOGRAM ST SEGMENT ABNORMAL [None]
  - HEART TRANSPLANT REJECTION [None]
  - SEROCONVERSION TEST POSITIVE [None]
  - VOMITING [None]
  - WEIGHT GAIN POOR [None]
